FAERS Safety Report 4745830-1 (Version None)
Quarter: 2005Q3

REPORT INFORMATION
  Report Type: 
  Country: None (occurrence: None)
  Receive Date: 20050815
  Receipt Date: 20050815
  Transmission Date: 20060218
  Serious: Yes (Other)
  Sender: FDA-Public Use
  Company Number: None

PATIENT
  Age: 31 Year
  Sex: Female
  Weight: 64.4108 kg

DRUGS (1)
  1. PAXIL CR [Suspect]
     Indication: ANXIETY
     Dosage: 12.5CR  QD  ORAL
     Route: 048
     Dates: start: 20041001, end: 20050810

REACTIONS (3)
  - DRUG WITHDRAWAL SYNDROME [None]
  - HOT FLUSH [None]
  - SOMNOLENCE [None]
